FAERS Safety Report 8695135 (Version 2)
Quarter: 2013Q4

REPORT INFORMATION
  Report Type: Spontaneous
  Country: US (occurrence: US)
  Receive Date: 20120731
  Receipt Date: 20131108
  Transmission Date: 20140711
  Serious: Yes (Hospitalization, Other)
  Sender: FDA-Public Use
  Company Number: US-009507513-1207USA009719

PATIENT
  Age: 62 Year
  Sex: Male

DRUGS (4)
  1. ZOCOR [Suspect]
     Route: 048
  2. MESALAMINE [Suspect]
  3. LISINOPRIL [Suspect]
  4. AZATHIOPRINE [Suspect]

REACTIONS (5)
  - Hypersensitivity vasculitis [Unknown]
  - Arthralgia [Unknown]
  - Cardiac murmur [Unknown]
  - Haemoglobin decreased [Unknown]
  - Endocarditis [Unknown]
